FAERS Safety Report 22111069 (Version 10)
Quarter: 2023Q2

REPORT INFORMATION
  Report Type: Report from Study
  Country: BG (occurrence: BG)
  Receive Date: 20230317
  Receipt Date: 20230630
  Transmission Date: 20230722
  Serious: Yes (Hospitalization, Other)
  Sender: FDA-Public Use
  Company Number: BG-AKCEA THERAPEUTICS, INC.-2023IS001266

PATIENT

DRUGS (15)
  1. TEGSEDI [Suspect]
     Active Substance: INOTERSEN SODIUM
     Indication: Hereditary neuropathic amyloidosis
     Dosage: 284 MILLIGRAM, QW
     Route: 058
     Dates: start: 20230228
  2. TEGSEDI [Suspect]
     Active Substance: INOTERSEN SODIUM
     Dosage: UNK UNK, QW
     Route: 065
  3. ELIQUIS [Concomitant]
     Active Substance: APIXABAN
     Indication: Thrombosis
     Dosage: 1/2 TABLET
     Route: 048
  4. CHOLECALCIFEROL\RETINOL [Concomitant]
     Active Substance: CHOLECALCIFEROL\RETINOL
     Indication: Vitamin supplementation
     Dosage: 1 DOSAGE FORM, QD
     Route: 048
  5. MIDODRINE HYDROCHLORIDE [Concomitant]
     Active Substance: MIDODRINE HYDROCHLORIDE
     Indication: Orthostatic hypotension
     Dosage: 5 MILLIGRAM (1 TABLET )
     Route: 048
  6. MAGNEROT [MAGNESIUM GLUCONATE] [Concomitant]
     Indication: Magnesium deficiency
     Dosage: 1 DOSAGE FORM, QD
     Route: 048
  7. SPIRONOLACTONE [Concomitant]
     Active Substance: SPIRONOLACTONE
     Indication: Product used for unknown indication
     Dosage: 0.5 DOSAGE FORM, BID
     Route: 065
  8. TRIMETAZIDINE DIHYDROCHLORIDE [Concomitant]
     Active Substance: TRIMETAZIDINE DIHYDROCHLORIDE
     Indication: Product used for unknown indication
     Dosage: 0.5 DOSAGE FORM
     Route: 065
  9. FUROSEMIDE [Concomitant]
     Active Substance: FUROSEMIDE
     Indication: Product used for unknown indication
     Dosage: 0.5 DOSAGE FORM, QD
     Route: 065
  10. CORDARONE [Concomitant]
     Active Substance: AMIODARONE HYDROCHLORIDE
     Indication: Product used for unknown indication
     Dosage: 200 MILLIGRAM, QD
     Route: 065
  11. ACETAMINOPHEN [Concomitant]
     Active Substance: ACETAMINOPHEN
     Indication: Product used for unknown indication
     Dosage: UNK UNK, QD
     Route: 065
  12. ALLOPURINOL [Concomitant]
     Active Substance: ALLOPURINOL
     Indication: Product used for unknown indication
     Dosage: 100 MILLIGRAM, QD
     Route: 065
  13. ASPIRIN [Concomitant]
     Active Substance: ASPIRIN
     Indication: Antiplatelet therapy
     Dosage: UNK
     Route: 065
  14. PLAVIX [Concomitant]
     Active Substance: CLOPIDOGREL BISULFATE
     Indication: Antiplatelet therapy
     Dosage: UNK
     Route: 065
  15. CLOPIDOGREL [Concomitant]
     Active Substance: CLOPIDOGREL BISULFATE
     Indication: Antiplatelet therapy
     Dosage: UNK
     Route: 065

REACTIONS (45)
  - Oedema peripheral [Not Recovered/Not Resolved]
  - Skin weeping [Not Recovered/Not Resolved]
  - Abdominal distension [Not Recovered/Not Resolved]
  - Swelling [Unknown]
  - Cardiac failure [Recovered/Resolved with Sequelae]
  - Malaise [Not Recovered/Not Resolved]
  - Vena cava thrombosis [Unknown]
  - Blood lactate dehydrogenase increased [Unknown]
  - Hepatosplenomegaly [Unknown]
  - Pyelonephritis [Unknown]
  - Ascites [Unknown]
  - Hepatic cirrhosis [Unknown]
  - Hypotension [Unknown]
  - Syncope [Unknown]
  - Dizziness [Unknown]
  - Balance disorder [Unknown]
  - Prothrombin time prolonged [Unknown]
  - International normalised ratio decreased [Unknown]
  - Arrhythmia [Unknown]
  - Blood bilirubin increased [Unknown]
  - Bilirubin conjugated abnormal [Unknown]
  - Aspartate aminotransferase increased [Recovered/Resolved]
  - Alanine aminotransferase increased [Recovered/Resolved]
  - Blood sodium decreased [Unknown]
  - Blood chloride decreased [Unknown]
  - Haemoglobin decreased [Not Recovered/Not Resolved]
  - Haematocrit decreased [Unknown]
  - Mean cell haemoglobin increased [Recovered/Resolved]
  - Platelet count decreased [Unknown]
  - Gamma-glutamyltransferase increased [Unknown]
  - Blood glucose decreased [Unknown]
  - Prothrombin time abnormal [Unknown]
  - Red blood cell abnormality [Unknown]
  - Hiatus hernia [Unknown]
  - Gastrooesophageal reflux disease [Unknown]
  - Pleurisy [Unknown]
  - Red blood cell count decreased [Unknown]
  - Basophil percentage increased [Recovered/Resolved]
  - Red cell distribution width decreased [Recovered/Resolved]
  - Mean cell haemoglobin concentration increased [Recovered/Resolved]
  - Platelet distribution width increased [Unknown]
  - Blood urea increased [Unknown]
  - Urine protein/creatinine ratio increased [Unknown]
  - Thrombocytopenia [Unknown]
  - Anaemia [Not Recovered/Not Resolved]

NARRATIVE: CASE EVENT DATE: 20230301
